FAERS Safety Report 21643339 (Version 1)
Quarter: 2022Q4

REPORT INFORMATION
  Report Type: Spontaneous
  Country: US (occurrence: US)
  Receive Date: 20221125
  Receipt Date: 20221125
  Transmission Date: 20230113
  Serious: No
  Sender: FDA-Public Use
  Company Number: US-GLAXOSMITHKLINE-USCH2022AMR046220

PATIENT
  Age: 13 Year
  Sex: Female

DRUGS (1)
  1. FLUTICASONE [Suspect]
     Active Substance: FLUTICASONE
     Indication: Influenza
     Dosage: UNK
     Dates: start: 202211

REACTIONS (5)
  - Nasal congestion [Unknown]
  - Influenza [Unknown]
  - Disease recurrence [Unknown]
  - Therapeutic product effect variable [Unknown]
  - Off label use [Unknown]

NARRATIVE: CASE EVENT DATE: 20221101
